FAERS Safety Report 24199419 (Version 1)
Quarter: 2024Q3

REPORT INFORMATION
  Report Type: Spontaneous
  Country: US (occurrence: US)
  Receive Date: 20240812
  Receipt Date: 20240812
  Transmission Date: 20241016
  Serious: Yes (Other)
  Sender: MYLAN
  Company Number: US-MYLANLABS-2024M1072812

PATIENT
  Age: 59 Year
  Sex: Male

DRUGS (8)
  1. FUROSEMIDE [Suspect]
     Active Substance: FUROSEMIDE
     Indication: Pulmonary arterial hypertension
     Dosage: 80 MILLIGRAM, BID
     Route: 065
  2. METOLAZONE [Suspect]
     Active Substance: METOLAZONE
     Indication: Pulmonary arterial hypertension
     Dosage: 2.5 MILLIGRAM, QW
     Route: 065
  3. METOLAZONE [Suspect]
     Active Substance: METOLAZONE
     Dosage: 2.5 MILLIGRAM, BIWEEKLY
     Route: 065
  4. METOLAZONE [Suspect]
     Active Substance: METOLAZONE
     Dosage: 2.5 MILLIGRAM, QW (DECREASED TO 2.5MG ONCE WEEKLY)
     Route: 065
  5. REMODULIN [Suspect]
     Active Substance: TREPROSTINIL
     Indication: Pulmonary arterial hypertension
     Dosage: UNK, INITIAL DOSAGE NOT STATED
     Route: 058
  6. REMODULIN [Suspect]
     Active Substance: TREPROSTINIL
     Dosage: UNK,  38 NG/KG/MIN
     Route: 058
  7. RIOCIGUAT [Concomitant]
     Active Substance: RIOCIGUAT
     Indication: Pulmonary arterial hypertension
     Dosage: UNK
     Route: 065
  8. AMBRISENTAN [Concomitant]
     Active Substance: AMBRISENTAN
     Indication: Pulmonary arterial hypertension
     Dosage: UNK
     Route: 065

REACTIONS (2)
  - Drug ineffective for unapproved indication [Unknown]
  - Off label use [Unknown]
